FAERS Safety Report 7552188-1 (Version None)
Quarter: 2011Q2

REPORT INFORMATION
  Report Type: 
  Country: None (occurrence: None)
  Receive Date: 20110616
  Receipt Date: 20030611
  Transmission Date: 20111010
  Serious: Yes (Hospitalization)
  Sender: FDA-Public Use
  Company Number: PHHO2003JP07624

PATIENT
  Sex: Male

DRUGS (4)
  1. LOCHOLEST [Suspect]
     Indication: HYPERCHOLESTEROLAEMIA
     Dosage: 20 MG, QD
     Route: 048
     Dates: start: 20000620, end: 20021023
  2. GANATON [Concomitant]
     Indication: GASTRITIS
     Dosage: UNK
  3. ACINON [Concomitant]
     Indication: GASTRITIS
     Dosage: UNK
  4. SEVEN EP [Concomitant]
     Indication: GASTRITIS
     Dosage: UNK

REACTIONS (1)
  - NEPHROPATHY [None]
